FAERS Safety Report 10405682 (Version 2)
Quarter: 2014Q3

REPORT INFORMATION
  Report Type: Spontaneous
  Country: US (occurrence: None)
  Receive Date: 20140821
  Receipt Date: 20140903
  Transmission Date: 20150326
  Serious: Yes (Disabling, Other)
  Sender: FDA-Public Use
  Company Number: ADR-2014-01468

PATIENT
  Sex: Female

DRUGS (7)
  1. MORPHINE [Suspect]
     Active Substance: MORPHINE
  2. CLONIDINE. [Suspect]
     Active Substance: CLONIDINE
  3. SALINE [Suspect]
     Active Substance: SODIUM CHLORIDE
  4. COMPOUNDED BACLOFEN INTRATHECAL [Suspect]
     Active Substance: BACLOFEN
     Dosage: 420 MCG/DAY (SEE B5)
  5. DILAUDID [Suspect]
     Active Substance: HYDROMORPHONE HYDROCHLORIDE
  6. METHADONE [Suspect]
     Active Substance: METHADONE HYDROCHLORIDE
     Dosage: 4MG/DAY (SEE B5)
  7. BLOOD PRESSURE MEDICINE [Suspect]
     Active Substance: UNSPECIFIED INGREDIENT

REACTIONS (30)
  - Abscess sterile [None]
  - Asthenia [None]
  - Monoplegia [None]
  - Muscle atrophy [None]
  - Areflexia [None]
  - Emotional disorder [None]
  - Device malfunction [None]
  - Catheter site abscess [None]
  - Fall [None]
  - Granuloma [None]
  - Muscle spasms [None]
  - Complex regional pain syndrome [None]
  - Device breakage [None]
  - Impaired healing [None]
  - Pain [None]
  - Muscular weakness [None]
  - Device ineffective [None]
  - Pancreatitis chronic [None]
  - Arachnoiditis [None]
  - Back pain [None]
  - Gait disturbance [None]
  - Therapeutic response decreased [None]
  - Infection [None]
  - Patient-device incompatibility [None]
  - Muscle tightness [None]
  - Nerve compression [None]
  - Medical device pain [None]
  - Hypertension [None]
  - Electric shock [None]
  - Catheter site mass [None]
